FAERS Safety Report 6567011-1 (Version None)
Quarter: 2010Q1

REPORT INFORMATION
  Report Type: 
  Country: None (occurrence: None)
  Receive Date: 20100202
  Receipt Date: 20100124
  Transmission Date: 20100710
  Serious: No
  Sender: FDA-Public Use
  Company Number: US-B.I. PHARMACEUTICALS,INC./RIDGEFIELD-2010-BP-00913BP

PATIENT
  Sex: Male

DRUGS (3)
  1. SPIRIVA [Suspect]
     Indication: CHRONIC OBSTRUCTIVE PULMONARY DISEASE
     Dosage: 18 MCG
     Route: 055
     Dates: start: 20091201, end: 20100101
  2. CLARITIN [Concomitant]
     Indication: HYPERSENSITIVITY
  3. IBUPROFEN [Concomitant]

REACTIONS (4)
  - DYSPNOEA [None]
  - HAEMORRHOIDS [None]
  - HERNIA [None]
  - MICTURITION FREQUENCY DECREASED [None]
